FAERS Safety Report 10213456 (Version 5)
Quarter: 2021Q1

REPORT INFORMATION
  Report Type: Spontaneous
  Country: US (occurrence: US)
  Receive Date: 20140603
  Receipt Date: 20210107
  Transmission Date: 20210419
  Serious: Yes (Hospitalization, Other)
  Sender: FDA-Public Use
  Company Number: US-SA-2014SA062021

PATIENT

DRUGS (3)
  1. CEREZYME [Suspect]
     Active Substance: IMIGLUCERASE
     Indication: GAUCHER^S DISEASE TYPE III
     Dosage: 1600 DF,QOW
     Route: 041
     Dates: start: 20120807
  2. CEREZYME [Suspect]
     Active Substance: IMIGLUCERASE
     Dosage: 1400 U (INFUSE 1400 UNITS ALTERNATING WITH 1200 UNITS), QW
     Route: 041
     Dates: start: 20191122
  3. CEREZYME [Suspect]
     Active Substance: IMIGLUCERASE
     Dosage: 1200 U (INFUSE 1400 UNITS ALTERNATING WITH 1200 UNITS), QW
     Route: 041
     Dates: start: 201911

REACTIONS (19)
  - Dyspnoea [Recovered/Resolved]
  - Urinary tract infection [Recovering/Resolving]
  - Productive cough [Unknown]
  - Localised oedema [Recovered/Resolved]
  - Poor venous access [Unknown]
  - Pyrexia [Not Recovered/Not Resolved]
  - Diarrhoea [Unknown]
  - Myoclonus [Unknown]
  - Condition aggravated [Recovered/Resolved]
  - Vomiting [Unknown]
  - Asthma [Unknown]
  - Infusion site extravasation [Unknown]
  - Condition aggravated [Unknown]
  - Pain [Not Recovered/Not Resolved]
  - Erythema [Unknown]
  - Influenza like illness [Unknown]
  - Nausea [Unknown]
  - Urine flow decreased [Unknown]
  - Inappropriate schedule of product administration [Unknown]

NARRATIVE: CASE EVENT DATE: 201405
